FAERS Safety Report 10765732 (Version 1)
Quarter: 2015Q1

REPORT INFORMATION
  Report Type: Spontaneous
  Country: US (occurrence: US)
  Receive Date: 20150205
  Receipt Date: 20150205
  Transmission Date: 20150721
  Serious: Yes (Hospitalization)
  Sender: FDA-Public Use
  Company Number: US-SA-2015SA013615

PATIENT
  Age: 27 Year
  Sex: Female

DRUGS (1)
  1. FABRAZYME [Suspect]
     Active Substance: AGALSIDASE BETA
     Indication: LIPIDOSIS
     Route: 042
     Dates: start: 20140529

REACTIONS (4)
  - Staphylococcal infection [Unknown]
  - Device related infection [Unknown]
  - Injury associated with device [Unknown]
  - Blood culture positive [Unknown]

NARRATIVE: CASE EVENT DATE: 20150121
